FAERS Safety Report 7378680-0 (Version None)
Quarter: 2011Q1

REPORT INFORMATION
  Report Type: 
  Country: None (occurrence: None)
  Receive Date: 20110318
  Receipt Date: 20110311
  Transmission Date: 20110831
  Serious: Yes (Hospitalization)
  Sender: FDA-Public Use
  Company Number: 2011SP006216

PATIENT
  Age: 80 Year
  Sex: Male

DRUGS (21)
  1. NEXIUM [Concomitant]
  2. PARACETAMOL [Concomitant]
  3. DEPAKOTE [Concomitant]
  4. CACIT D3 [Concomitant]
  5. KARDEGIC [Concomitant]
  6. LAMICTAL [Concomitant]
  7. MOTILIUM [Concomitant]
  8. LOVENOX [Concomitant]
  9. CAPTOPRIL [Suspect]
     Indication: HYPERTENSION
     Dosage: 25 MG; QD; PO
     Route: 048
     Dates: end: 20101029
  10. TEMESTA [Concomitant]
  11. FORLAX [Concomitant]
  12. SEROPLEX [Concomitant]
  13. COVERSYL (PERINDOPRIL) [Suspect]
     Indication: PRODUCT USED FOR UNKNOWN INDICATION
     Dosage: 2.5 MG; QD
     Dates: start: 20101028
  14. ATHYMIL [Concomitant]
  15. ARTANE [Concomitant]
  16. MIRTAZAPINE [Suspect]
     Indication: DEPRESSION
     Dosage: 15 MG; QD; PO
     Route: 048
     Dates: start: 20101023, end: 20101102
  17. LASIX [Concomitant]
  18. CONTRAMAL [Concomitant]
  19. UVEDOSE [Concomitant]
  20. TERCIAN (CYAMEMAZINE) [Suspect]
     Indication: PRODUCT USED FOR UNKNOWN INDICATION
     Dosage: 25 MG; QD; PO
     Route: 048
     Dates: end: 20101022
  21. TIAPRIDAL [Concomitant]

REACTIONS (9)
  - LYMPHOPENIA [None]
  - INFLAMMATION [None]
  - NEUTROPENIA [None]
  - DEPRESSION [None]
  - THROMBOCYTOPENIA [None]
  - LEUKOPENIA [None]
  - NORMOCHROMIC NORMOCYTIC ANAEMIA [None]
  - PUBIS FRACTURE [None]
  - BONE MARROW MYELOGRAM ABNORMAL [None]
